FAERS Safety Report 9863180 (Version 1)
Quarter: 2014Q1

REPORT INFORMATION
  Report Type: Report from Study
  Country: US (occurrence: US)
  Receive Date: 20140203
  Receipt Date: 20140203
  Transmission Date: 20141002
  Serious: Yes (Death)
  Sender: FDA-Public Use
  Company Number: US-ROCHE-1316942

PATIENT
  Age: 50 Year
  Sex: Female
  Weight: 50.85 kg

DRUGS (14)
  1. AVASTIN [Suspect]
     Indication: OVARIAN CANCER METASTATIC
     Route: 042
     Dates: start: 20101111
  2. ALOXI [Concomitant]
     Route: 042
     Dates: start: 20101111
  3. DECADRON [Concomitant]
     Route: 042
  4. ZOFRAN [Concomitant]
     Dosage: AS NEEDED
     Route: 065
  5. VITAMIN B12 [Concomitant]
     Dosage: 1000 MCG
     Route: 065
     Dates: start: 20101104
  6. FOLATE [Concomitant]
     Route: 065
     Dates: start: 20101104
  7. ALIMTA [Concomitant]
     Route: 042
  8. NEULASTA [Concomitant]
     Route: 065
  9. ARANESP [Concomitant]
     Indication: ANAEMIA
     Route: 065
  10. VITAMIN B6 [Concomitant]
     Route: 065
  11. MARINOL (UNITED STATES) [Concomitant]
     Route: 065
  12. FENTANYL PATCH [Concomitant]
     Route: 065
  13. HYDROCODONE/APAP [Concomitant]
     Dosage: 1-2 TABLET, 4-6 HOURS FOR BREAKTHROUGH PAIN
     Route: 065
  14. NEOMYCIN [Concomitant]
     Route: 065

REACTIONS (16)
  - Death [Fatal]
  - Neuropathy peripheral [Unknown]
  - Abdominal pain [Recovering/Resolving]
  - Constipation [Unknown]
  - Mucous stools [Unknown]
  - Fatigue [Unknown]
  - Dizziness [Unknown]
  - Hypotension [Unknown]
  - Blister [Unknown]
  - Asthenia [Unknown]
  - Epistaxis [Unknown]
  - Dehydration [Unknown]
  - Stomatitis [Unknown]
  - Herpes zoster [Unknown]
  - Skin ulcer [Unknown]
  - Wound [Unknown]
